FAERS Safety Report 25163896 (Version 1)
Quarter: 2025Q2

REPORT INFORMATION
  Report Type: Spontaneous
  Country: US (occurrence: US)
  Receive Date: 20250405
  Receipt Date: 20250405
  Transmission Date: 20250716
  Serious: Yes (Life-Threatening, Hospitalization)
  Sender: MACLEODS
  Company Number: US-MACLEODS PHARMA-MAC2025052400

PATIENT

DRUGS (1)
  1. SILDENAFIL [Suspect]
     Active Substance: SILDENAFIL
     Indication: Product used for unknown indication
     Route: 065

REACTIONS (7)
  - Intracranial aneurysm [Recovering/Resolving]
  - Subarachnoid haemorrhage [Recovering/Resolving]
  - Brain herniation [Recovering/Resolving]
  - Metabolic acidosis [Recovering/Resolving]
  - Respiratory acidosis [Recovering/Resolving]
  - Hydrocephalus [Recovering/Resolving]
  - Pulmonary oedema [Unknown]
